FAERS Safety Report 4268645-X (Version None)
Quarter: 2004Q1

REPORT INFORMATION
  Report Type: 
  Country: None (occurrence: None)
  Receive Date: 20040112
  Receipt Date: 20030915
  Transmission Date: 20041129
  Serious: Yes (Other)
  Sender: FDA-Public Use
  Company Number: WAES 0309USA01611

PATIENT
  Age: 13 Year
  Sex: Male

DRUGS (3)
  1. COMBIVENT [Concomitant]
     Indication: COUGH
     Route: 055
  2. CLARINEX [Concomitant]
     Indication: COUGH
  3. SINGULAIR [Suspect]
     Route: 048
     Dates: start: 20030905

REACTIONS (3)
  - ANAPHYLACTIC REACTION [None]
  - ANGIONEUROTIC OEDEMA [None]
  - LARYNGOSPASM [None]
